FAERS Safety Report 4372050-5 (Version None)
Quarter: 2004Q2

REPORT INFORMATION
  Report Type: 
  Country: None (occurrence: None)
  Receive Date: 20040602
  Receipt Date: 20040525
  Transmission Date: 20050107
  Serious: Yes (Hospitalization)
  Sender: FDA-Public Use
  Company Number: KR-JNJFOC-20040506444

PATIENT
  Age: 25 Year
  Sex: Male

DRUGS (2)
  1. IBUPROFEN [Suspect]
     Indication: HEADACHE
  2. IBUPROFEN [Suspect]
     Indication: MYALGIA

REACTIONS (14)
  - BRONCHOALVEOLAR LAVAGE ABNORMAL [None]
  - CHEST X-RAY ABNORMAL [None]
  - COUGH [None]
  - EOSINOPHIL COUNT INCREASED [None]
  - LUNG INFILTRATION [None]
  - MALAISE [None]
  - PERCUSSION TEST ABNORMAL [None]
  - PLEURITIC PAIN [None]
  - PYREXIA [None]
  - RALES [None]
  - RESPIRATORY FREMITUS [None]
  - UPPER RESPIRATORY TRACT INFECTION [None]
  - WHEEZING [None]
  - WHITE BLOOD CELL COUNT INCREASED [None]
